FAERS Safety Report 7718983-0 (Version None)
Quarter: 2011Q3

REPORT INFORMATION
  Report Type: 
  Country: None (occurrence: None)
  Receive Date: 20110830
  Receipt Date: 20110822
  Transmission Date: 20111222
  Serious: Yes (Other)
  Sender: FDA-Public Use
  Company Number: US-GLAXOSMITHKLINE-A0941861A

PATIENT
  Age: 60 Year
  Sex: Male

DRUGS (2)
  1. NO CONCURRENT MEDICATION [Concomitant]
  2. AVODART [Suspect]
     Indication: BENIGN PROSTATIC HYPERPLASIA
     Dosage: 1CAP PER DAY
     Route: 048
     Dates: start: 20070701, end: 20110701

REACTIONS (3)
  - CEREBROVASCULAR SPASM [None]
  - VERTIGO [None]
  - FEELING ABNORMAL [None]
